FAERS Safety Report 9164886 (Version 1)
Quarter: 2013Q1

REPORT INFORMATION
  Report Type: Spontaneous
  Country: DE (occurrence: DE)
  Receive Date: 20130315
  Receipt Date: 20130315
  Transmission Date: 20140127
  Serious: Yes (Other)
  Sender: FDA-Public Use
  Company Number: DE-TEVA-390329GER

PATIENT
  Sex: Male
  Weight: 90 kg

DRUGS (11)
  1. MTX [Suspect]
     Indication: MYALGIA
     Route: 058
     Dates: start: 201102
  2. METFORMIN AL 850 [Concomitant]
  3. VIGANTOLETTEN [Concomitant]
  4. CALCIGEN D [Concomitant]
  5. BISOPROLOL [Concomitant]
  6. RAMIPRIL [Concomitant]
  7. TAMSULOSIN BASIC [Concomitant]
  8. FINASTERID ACTAVIS [Concomitant]
  9. LODOTRA [Concomitant]
  10. NOVAMINSULFON [Concomitant]
  11. GINGIUM [Concomitant]

REACTIONS (2)
  - Psychotic disorder [Recovered/Resolved]
  - Aggression [Recovered/Resolved]
